FAERS Safety Report 8586246-X (Version None)
Quarter: 2012Q3

REPORT INFORMATION
  Report Type: 
  Country: None (occurrence: None)
  Receive Date: 20120810
  Receipt Date: 20120730
  Transmission Date: 20120928
  Serious: Yes (Other)
  Sender: FDA-Public Use
  Company Number: DE-ROCHE-1097001

PATIENT
  Sex: Female

DRUGS (5)
  1. MIRCERA [Suspect]
     Dates: start: 20120328, end: 20120604
  2. MIRCERA [Suspect]
     Indication: NEPHROGENIC ANAEMIA
     Dates: start: 20110301, end: 20120227
  3. MIRCERA [Suspect]
     Dates: start: 20120716
  4. MIRCERA [Suspect]
     Dates: start: 20120618, end: 20120618
  5. VENOFER [Concomitant]
     Route: 042
     Dates: start: 20111107, end: 20120206

REACTIONS (2)
  - HAEMOGLOBIN ABNORMAL [None]
  - DRUG INEFFECTIVE [None]
